FAERS Safety Report 8221770 (Version 6)
Quarter: 2012Q4

REPORT INFORMATION
  Report Type: 
  Country: US (occurrence: US)
  Receive Date: 20111102
  Receipt Date: 20120914
  Transmission Date: 20130627
  Serious: Yes (Hospitalization, Disabling, Other)
  Sender: FDA-Public Use
  Company Number: US-009507513-1103USA01555

PATIENT

DRUGS (3)
  1. FOSAMAX [Suspect]
     Indication: OSTEOPOROSIS PROPHYLAXIS
     Dosage: 70 mg, QW
     Route: 048
     Dates: start: 20021230
  2. FOSAMAX [Suspect]
     Indication: OSTEOPENIA
     Dosage: 70 mg, qd
     Route: 048
     Dates: start: 20040811
  3. FOSAMAX [Suspect]
     Dosage: 70 mg, QW
     Route: 048
     Dates: end: 20051011

REACTIONS (34)
  - Intervertebral disc disorder [Unknown]
  - Hemiparesis [Unknown]
  - Transient ischaemic attack [Unknown]
  - Synovial cyst [Unknown]
  - Osteonecrosis of jaw [Unknown]
  - Tooth fracture [Unknown]
  - Dental caries [Unknown]
  - Tooth disorder [Unknown]
  - Stomatitis [Unknown]
  - Oral infection [Unknown]
  - Exposed bone in jaw [Unknown]
  - Exostosis [Unknown]
  - Abscess [Unknown]
  - Oral disorder [Unknown]
  - Denture wearer [Unknown]
  - Dental prosthesis user [Unknown]
  - Prescribed overdose [Unknown]
  - Sinusitis [Not Recovered/Not Resolved]
  - Osteoarthritis [Unknown]
  - Arthritis [Unknown]
  - Seasonal allergy [Unknown]
  - Blood pressure increased [Unknown]
  - Spondylolisthesis [Unknown]
  - Cataract [Unknown]
  - Bursitis [Unknown]
  - Lumbar spinal stenosis [Unknown]
  - Facet joint syndrome [Unknown]
  - Herpes zoster [Unknown]
  - Rash [Unknown]
  - Arthralgia [Unknown]
  - Abdominal discomfort [Unknown]
  - Pain in jaw [Recovering/Resolving]
  - Drug hypersensitivity [Unknown]
  - Hypersensitivity [Recovering/Resolving]
